FAERS Safety Report 14702428 (Version 2)
Quarter: 2018Q2

REPORT INFORMATION
  Report Type: Spontaneous
  Country: JP (occurrence: JP)
  Receive Date: 20180401
  Receipt Date: 20180412
  Transmission Date: 20180711
  Serious: Yes (Other)
  Sender: FDA-Public Use
  Company Number: PHJP2018JP005779

PATIENT
  Age: 80 Year
  Sex: Female

DRUGS (2)
  1. TRAVATAN Z [Suspect]
     Active Substance: TRAVOPROST
     Indication: NORMAL TENSION GLAUCOMA
     Dosage: UNK, QD
     Route: 047
     Dates: start: 20180113, end: 20180131
  2. TEARBALANCE [Concomitant]
     Active Substance: HYALURONATE SODIUM
     Indication: DRY EYE
     Dosage: UNK, QID
     Route: 065
     Dates: start: 20180105

REACTIONS (4)
  - Corneal erosion [Recovered/Resolved]
  - Foreign body sensation in eyes [Unknown]
  - Corneal epithelium defect [Unknown]
  - Ocular hyperaemia [Unknown]

NARRATIVE: CASE EVENT DATE: 20180131
